FAERS Safety Report 4590268-3 (Version None)
Quarter: 2005Q1

REPORT INFORMATION
  Report Type: 
  Country: None (occurrence: None)
  Receive Date: 20050216
  Receipt Date: 20050203
  Transmission Date: 20050727
  Serious: Yes (Other)
  Sender: FDA-Public Use
  Company Number: HQWYE452915JUN04

PATIENT
  Age: 25 Year
  Sex: Male

DRUGS (1)
  1. REFACTO [Suspect]
     Indication: PROPHYLAXIS
     Dosage: PROPHYLACTIC TREATMENT OF 1500 U (25 U/KG) EVERY OTHER DAY OR 3 TIMES PER WEEK UNKNOWN
     Route: 065
     Dates: start: 20011201, end: 20040401

REACTIONS (3)
  - ACTIVATED PARTIAL THROMBOPLASTIN TIME PROLONGED [None]
  - DRUG INEFFECTIVE [None]
  - HAEMORRHAGE [None]
